FAERS Safety Report 23809861 (Version 3)
Quarter: 2024Q2

REPORT INFORMATION
  Report Type: Spontaneous
  Country: US (occurrence: US)
  Receive Date: 20240502
  Receipt Date: 20240523
  Transmission Date: 20240716
  Serious: No
  Sender: FDA-Public Use
  Company Number: US-JNJFOC-20240488123

PATIENT

DRUGS (1)
  1. SPRAVATO [Suspect]
     Active Substance: ESKETAMINE
     Indication: Product used for unknown indication
     Dosage: THERAPY DATES - 23-FEB-2024, 26-FEB-2024, 01-MAR-2024
     Dates: start: 20240219

REACTIONS (2)
  - Product delivery mechanism issue [Unknown]
  - Drug dose omission by device [Unknown]
